FAERS Safety Report 13035959 (Version 1)
Quarter: 2016Q4

REPORT INFORMATION
  Report Type: Spontaneous
  Country: US (occurrence: US)
  Receive Date: 20161216
  Receipt Date: 20161216
  Transmission Date: 20170207
  Serious: Yes (Death)
  Sender: FDA-Public Use
  Company Number: US-TURING PHARMACEUTICALS-2016TNG00056

PATIENT
  Age: 61 Year
  Sex: Female

DRUGS (10)
  1. GABAPENTIN. [Concomitant]
     Active Substance: GABAPENTIN
  2. PREDNISONE. [Concomitant]
     Active Substance: PREDNISONE
  3. HYDROCHLOROTHIAZIDE. [Concomitant]
     Active Substance: HYDROCHLOROTHIAZIDE
  4. NEXIUM [Concomitant]
     Active Substance: ESOMEPRAZOLE MAGNESIUM
  5. PRAVASTATIN. [Concomitant]
     Active Substance: PRAVASTATIN
  6. PLAQUENIL [Concomitant]
     Active Substance: HYDROXYCHLOROQUINE SULFATE
  7. SUCRALFATE. [Concomitant]
     Active Substance: SUCRALFATE
  8. DARAPRIM [Suspect]
     Active Substance: PYRIMETHAMINE
  9. METOLAZONE. [Concomitant]
     Active Substance: METOLAZONE
  10. LEVOTHYROXINE. [Concomitant]
     Active Substance: LEVOTHYROXINE

REACTIONS (2)
  - Disease progression [Fatal]
  - Renal disorder [Fatal]

NARRATIVE: CASE EVENT DATE: 20161121
